FAERS Safety Report 13131251 (Version 1)
Quarter: 2017Q1

REPORT INFORMATION
  Report Type: Spontaneous
  Country: US (occurrence: US)
  Receive Date: 20170119
  Receipt Date: 20170119
  Transmission Date: 20170428
  Serious: No
  Sender: FDA-Public Use
  Company Number: US-ASTRAZENECA-2017SE04091

PATIENT
  Age: 174 Month
  Sex: Female
  Weight: 48.5 kg

DRUGS (2)
  1. ALBUTEROL AND ANOTHER MEDICATION COMBO [Concomitant]
     Indication: DYSPNOEA
     Dosage: AS REQUIRED
     Route: 055
     Dates: start: 201612
  2. PULMICORT RESPULES [Suspect]
     Active Substance: BUDESONIDE
     Indication: ASTHMA
     Dosage: ONCE IN THE MORNING AND ONCE IN THE EVENING
     Route: 055
     Dates: start: 201612

REACTIONS (3)
  - Drug administered to patient of inappropriate age [Unknown]
  - Pain in extremity [Unknown]
  - Off label use [Not Recovered/Not Resolved]

NARRATIVE: CASE EVENT DATE: 201612
